FAERS Safety Report 4616089-0 (Version None)
Quarter: 2005Q1

REPORT INFORMATION
  Report Type: 
  Country: None (occurrence: None)
  Receive Date: 20050323
  Receipt Date: 20050311
  Transmission Date: 20050727
  Serious: Yes (Death, Other)
  Sender: FDA-Public Use
  Company Number: JP-BRISTOL-MYERS SQUIBB COMPANY-12895819

PATIENT
  Age: 95 Year
  Sex: Female

DRUGS (4)
  1. MAXIPIME [Suspect]
     Indication: PNEUMONIA
     Route: 041
     Dates: start: 20050226, end: 20050307
  2. SOLITA-T NO. 3 [Concomitant]
     Route: 041
     Dates: start: 20050205, end: 20050307
  3. ELEMENMIC [Concomitant]
     Route: 041
     Dates: start: 20050205, end: 20050307
  4. PNTWIN [Concomitant]
     Route: 041
     Dates: start: 20050205, end: 20050307

REACTIONS (4)
  - CARDIO-RESPIRATORY ARREST [None]
  - CONVULSION [None]
  - DEPRESSED LEVEL OF CONSCIOUSNESS [None]
  - RENAL FAILURE ACUTE [None]
